FAERS Safety Report 25113914 (Version 3)
Quarter: 2025Q2

REPORT INFORMATION
  Report Type: Spontaneous
  Country: ES (occurrence: ES)
  Receive Date: 20250324
  Receipt Date: 20250418
  Transmission Date: 20250716
  Serious: Yes (Hospitalization)
  Sender: ROCHE
  Company Number: ES-ROCHE-10000196656

PATIENT
  Age: 53 Year
  Sex: Female

DRUGS (1)
  1. FARICIMAB [Suspect]
     Active Substance: FARICIMAB
     Indication: Diabetic retinal oedema
     Route: 065
     Dates: start: 202405

REACTIONS (2)
  - Retinal occlusive vasculitis [Unknown]
  - Product quality issue [Unknown]
